FAERS Safety Report 10439067 (Version 5)
Quarter: 2015Q1

REPORT INFORMATION
  Report Type: Report from Study
  Country: US (occurrence: US)
  Receive Date: 20140908
  Receipt Date: 20150211
  Transmission Date: 20150720
  Serious: Yes (Other)
  Sender: FDA-Public Use
  Company Number: US-SANOFI-AVENTIS-2013SA063252

PATIENT
  Sex: Female

DRUGS (2)
  1. AUBAGIO [Suspect]
     Active Substance: TERIFLUNOMIDE
     Indication: MULTIPLE SCLEROSIS
     Route: 048
     Dates: start: 20130513
  2. DESVENLAFAXINE SUCCINATE [Concomitant]
     Active Substance: DESVENLAFAXINE SUCCINATE

REACTIONS (29)
  - Asthenia [Unknown]
  - Confusional state [Unknown]
  - Fatigue [Unknown]
  - Head injury [Unknown]
  - Nausea [Unknown]
  - Seizure [Unknown]
  - Dyskinesia [Unknown]
  - Haemorrhage [Unknown]
  - Decreased appetite [Unknown]
  - Tic [Unknown]
  - Memory impairment [Unknown]
  - Drug dose omission [Unknown]
  - Contusion [Unknown]
  - Mouth injury [Unknown]
  - Fall [Unknown]
  - Amnesia [Recovering/Resolving]
  - Gait disturbance [Unknown]
  - Haematoma [Unknown]
  - Feeling abnormal [Unknown]
  - Impaired work ability [Unknown]
  - Facial bones fracture [Unknown]
  - Alopecia [Not Recovered/Not Resolved]
  - Frustration [Unknown]
  - Multiple sclerosis relapse [Unknown]
  - Monoparesis [Unknown]
  - Disease progression [Unknown]
  - Joint swelling [Unknown]
  - Diarrhoea [Not Recovered/Not Resolved]
  - Weight decreased [Unknown]
